FAERS Safety Report 23486492 (Version 1)
Quarter: 2024Q1

REPORT INFORMATION
  Report Type: Spontaneous
  Country: US (occurrence: None)
  Receive Date: 20240206
  Receipt Date: 20240206
  Transmission Date: 20240409
  Serious: No
  Sender: FDA-Public Use
  Company Number: 2024A029610

PATIENT
  Sex: Female
  Weight: 59.9 kg

DRUGS (48)
  1. NEXIUM [Suspect]
     Active Substance: ESOMEPRAZOLE MAGNESIUM
     Indication: Gastrooesophageal reflux disease
     Dosage: UNK
  2. NEXIUM [Suspect]
     Active Substance: ESOMEPRAZOLE MAGNESIUM
     Indication: Nausea
     Dosage: UNK
  3. NEXIUM [Suspect]
     Active Substance: ESOMEPRAZOLE MAGNESIUM
     Indication: Vomiting
     Dosage: UNK
  4. NEXIUM [Suspect]
     Active Substance: ESOMEPRAZOLE MAGNESIUM
     Indication: Asthenia
     Dosage: UNK
  5. NEXIUM [Suspect]
     Active Substance: ESOMEPRAZOLE MAGNESIUM
     Indication: Gastrooesophageal reflux disease
     Dosage: UNK
  6. NEXIUM [Suspect]
     Active Substance: ESOMEPRAZOLE MAGNESIUM
     Indication: Nausea
     Dosage: UNK
  7. NEXIUM [Suspect]
     Active Substance: ESOMEPRAZOLE MAGNESIUM
     Indication: Vomiting
     Dosage: UNK
  8. NEXIUM [Suspect]
     Active Substance: ESOMEPRAZOLE MAGNESIUM
     Indication: Asthenia
     Dosage: UNK
  9. NEXIUM [Suspect]
     Active Substance: ESOMEPRAZOLE MAGNESIUM
     Indication: Gastrooesophageal reflux disease
     Dosage: UNK
  10. NEXIUM [Suspect]
     Active Substance: ESOMEPRAZOLE MAGNESIUM
     Indication: Nausea
     Dosage: UNK
  11. NEXIUM [Suspect]
     Active Substance: ESOMEPRAZOLE MAGNESIUM
     Indication: Vomiting
     Dosage: UNK
  12. NEXIUM [Suspect]
     Active Substance: ESOMEPRAZOLE MAGNESIUM
     Indication: Asthenia
     Dosage: UNK
  13. NEXIUM [Suspect]
     Active Substance: ESOMEPRAZOLE MAGNESIUM
     Indication: Gastrooesophageal reflux disease
     Dosage: UNK
  14. NEXIUM [Suspect]
     Active Substance: ESOMEPRAZOLE MAGNESIUM
     Indication: Nausea
     Dosage: UNK
  15. NEXIUM [Suspect]
     Active Substance: ESOMEPRAZOLE MAGNESIUM
     Indication: Vomiting
     Dosage: UNK
  16. NEXIUM [Suspect]
     Active Substance: ESOMEPRAZOLE MAGNESIUM
     Indication: Asthenia
     Dosage: UNK
  17. TUMS [Suspect]
     Active Substance: CALCIUM CARBONATE
     Indication: Gastrooesophageal reflux disease
     Dosage: UNK
  18. TUMS [Suspect]
     Active Substance: CALCIUM CARBONATE
     Indication: Nausea
     Dosage: UNK
  19. TUMS [Suspect]
     Active Substance: CALCIUM CARBONATE
     Indication: Vomiting
     Dosage: UNK
  20. TUMS [Suspect]
     Active Substance: CALCIUM CARBONATE
     Indication: Asthenia
     Dosage: UNK
  21. TUMS [Suspect]
     Active Substance: CALCIUM CARBONATE
     Indication: Gastrooesophageal reflux disease
     Dosage: UNK
  22. TUMS [Suspect]
     Active Substance: CALCIUM CARBONATE
     Indication: Nausea
     Dosage: UNK
  23. TUMS [Suspect]
     Active Substance: CALCIUM CARBONATE
     Indication: Vomiting
     Dosage: UNK
  24. TUMS [Suspect]
     Active Substance: CALCIUM CARBONATE
     Indication: Asthenia
     Dosage: UNK
  25. TUMS [Suspect]
     Active Substance: CALCIUM CARBONATE
     Indication: Gastrooesophageal reflux disease
     Dosage: UNK
  26. TUMS [Suspect]
     Active Substance: CALCIUM CARBONATE
     Indication: Nausea
     Dosage: UNK
  27. TUMS [Suspect]
     Active Substance: CALCIUM CARBONATE
     Indication: Vomiting
     Dosage: UNK
  28. TUMS [Suspect]
     Active Substance: CALCIUM CARBONATE
     Indication: Asthenia
     Dosage: UNK
  29. TUMS [Suspect]
     Active Substance: CALCIUM CARBONATE
     Indication: Gastrooesophageal reflux disease
     Dosage: UNK
  30. TUMS [Suspect]
     Active Substance: CALCIUM CARBONATE
     Indication: Nausea
     Dosage: UNK
  31. TUMS [Suspect]
     Active Substance: CALCIUM CARBONATE
     Indication: Vomiting
     Dosage: UNK
  32. TUMS [Suspect]
     Active Substance: CALCIUM CARBONATE
     Indication: Asthenia
     Dosage: UNK
  33. PREVACID [Suspect]
     Active Substance: LANSOPRAZOLE
     Indication: Gastrooesophageal reflux disease
     Dosage: UNK
  34. PREVACID [Suspect]
     Active Substance: LANSOPRAZOLE
     Indication: Nausea
     Dosage: UNK
  35. PREVACID [Suspect]
     Active Substance: LANSOPRAZOLE
     Indication: Vomiting
     Dosage: UNK
  36. PREVACID [Suspect]
     Active Substance: LANSOPRAZOLE
     Indication: Asthenia
     Dosage: UNK
  37. PREVACID [Suspect]
     Active Substance: LANSOPRAZOLE
     Indication: Gastrooesophageal reflux disease
     Dosage: UNK
  38. PREVACID [Suspect]
     Active Substance: LANSOPRAZOLE
     Indication: Nausea
     Dosage: UNK
  39. PREVACID [Suspect]
     Active Substance: LANSOPRAZOLE
     Indication: Vomiting
     Dosage: UNK
  40. PREVACID [Suspect]
     Active Substance: LANSOPRAZOLE
     Indication: Asthenia
     Dosage: UNK
  41. PREVACID [Suspect]
     Active Substance: LANSOPRAZOLE
     Indication: Gastrooesophageal reflux disease
     Dosage: UNK
  42. PREVACID [Suspect]
     Active Substance: LANSOPRAZOLE
     Indication: Nausea
     Dosage: UNK
  43. PREVACID [Suspect]
     Active Substance: LANSOPRAZOLE
     Indication: Vomiting
     Dosage: UNK
  44. PREVACID [Suspect]
     Active Substance: LANSOPRAZOLE
     Indication: Asthenia
     Dosage: UNK
  45. PREVACID [Suspect]
     Active Substance: LANSOPRAZOLE
     Indication: Gastrooesophageal reflux disease
     Dosage: UNK
  46. PREVACID [Suspect]
     Active Substance: LANSOPRAZOLE
     Indication: Nausea
     Dosage: UNK
  47. PREVACID [Suspect]
     Active Substance: LANSOPRAZOLE
     Indication: Vomiting
     Dosage: UNK
  48. PREVACID [Suspect]
     Active Substance: LANSOPRAZOLE
     Indication: Asthenia
     Dosage: UNK

REACTIONS (3)
  - Oesophageal pain [Unknown]
  - Drug ineffective for unapproved indication [Unknown]
  - Product use in unapproved indication [Unknown]
